FAERS Safety Report 4922572-0 (Version None)
Quarter: 2006Q1

REPORT INFORMATION
  Report Type: 
  Country: None (occurrence: None)
  Receive Date: 20060224
  Receipt Date: 20060221
  Transmission Date: 20060701
  Serious: Yes (Congenital Anomaly)
  Sender: FDA-Public Use
  Company Number: US-GLAXOSMITHKLINE-A0594850A

PATIENT

DRUGS (1)
  1. LAMICTAL [Suspect]
     Indication: BIPOLAR DISORDER

REACTIONS (2)
  - DRUG EXPOSURE DURING PREGNANCY [None]
  - HYPOPLASTIC LEFT HEART SYNDROME [None]
